FAERS Safety Report 7533789-3 (Version None)
Quarter: 2011Q2

REPORT INFORMATION
  Report Type: 
  Country: None (occurrence: None)
  Receive Date: 20110608
  Receipt Date: 20110527
  Transmission Date: 20111010
  Serious: Yes (Other)
  Sender: FDA-Public Use
  Company Number: US-AMGEN-USASP2011027975

PATIENT
  Age: 92 Year

DRUGS (1)
  1. ARANESP [Suspect]
     Indication: MYELODYSPLASTIC SYNDROME
     Dosage: 500 A?G, QWK
     Dates: start: 20090901

REACTIONS (3)
  - MUSCULAR WEAKNESS [None]
  - GROIN PAIN [None]
  - MOBILITY DECREASED [None]
